FAERS Safety Report 14450702 (Version 1)
Quarter: 2018Q1

REPORT INFORMATION
  Report Type: Other
  Country: US (occurrence: US)
  Receive Date: 20180129
  Receipt Date: 20180129
  Transmission Date: 20180509
  Serious: Yes (Hospitalization, Other)
  Sender: FDA-Public Use
  Company Number: US-AJANTA PHARMA USA INC.-2040934

PATIENT
  Age: 76 Year
  Sex: Female

DRUGS (13)
  1. OXCARBAZEPINE. [Suspect]
     Active Substance: OXCARBAZEPINE
  2. LEVOTHYROXINE. [Concomitant]
     Active Substance: LEVOTHYROXINE
  3. METOPROLOL. [Concomitant]
     Active Substance: METOPROLOL
  4. OLANZAPINE (ANDA 204320) [Suspect]
     Active Substance: OLANZAPINE
     Indication: MANIA
  5. VALPROIC ACID. [Suspect]
     Active Substance: VALPROIC ACID
  6. LORATADINE. [Concomitant]
     Active Substance: LORATADINE
  7. ASPIRIN. [Concomitant]
     Active Substance: ASPIRIN
  8. FUROSEMIDE. [Concomitant]
     Active Substance: FUROSEMIDE
  9. LORAZEPAM. [Concomitant]
     Active Substance: LORAZEPAM
  10. QUETIAPINE. [Suspect]
     Active Substance: QUETIAPINE
  11. AMLODIPINE [Concomitant]
     Active Substance: AMLODIPINE BESYLATE
  12. OMEPRAZOLE. [Concomitant]
     Active Substance: OMEPRAZOLE
  13. LITHIUM. [Concomitant]
     Active Substance: LITHIUM

REACTIONS (2)
  - Potentiating drug interaction [Recovered/Resolved]
  - Hypothermia [Recovered/Resolved]

NARRATIVE: CASE EVENT DATE: 20171030
